FAERS Safety Report 10551315 (Version 2)
Quarter: 2014Q4

REPORT INFORMATION
  Report Type: Spontaneous
  Country: US (occurrence: US)
  Receive Date: 20141029
  Receipt Date: 20141230
  Transmission Date: 20150529
  Serious: Yes (Hospitalization)
  Sender: FDA-Public Use
  Company Number: US-JNJFOC-20141011496

PATIENT
  Age: 42 Year
  Sex: Female
  Weight: 118.84 kg

DRUGS (4)
  1. XARELTO [Suspect]
     Active Substance: RIVAROXABAN
     Indication: THROMBOSIS PROPHYLAXIS
     Route: 048
     Dates: start: 20140311, end: 20141006
  2. LOVENOX [Concomitant]
     Active Substance: ENOXAPARIN SODIUM
     Route: 065
  3. XARELTO [Suspect]
     Active Substance: RIVAROXABAN
     Indication: THROMBOSIS PROPHYLAXIS
     Route: 048
     Dates: start: 20140311, end: 20141006
  4. LOVENOX [Concomitant]
     Active Substance: ENOXAPARIN SODIUM
     Route: 065

REACTIONS (4)
  - Pelvic venous thrombosis [Recovering/Resolving]
  - Treatment failure [Unknown]
  - Pulmonary thrombosis [Recovering/Resolving]
  - Vena cava thrombosis [Recovering/Resolving]

NARRATIVE: CASE EVENT DATE: 2014
